FAERS Safety Report 23178235 (Version 1)
Quarter: 2023Q4

REPORT INFORMATION
  Report Type: Spontaneous
  Country: BG (occurrence: BG)
  Receive Date: 20231113
  Receipt Date: 20231113
  Transmission Date: 20240110
  Serious: Yes (Hospitalization, Other)
  Sender: FDA-Public Use
  Company Number: BG-002147023-NVSC2023BG240090

PATIENT

DRUGS (4)
  1. RUXOLITINIB [Suspect]
     Active Substance: RUXOLITINIB
     Indication: Primary myelofibrosis
     Dosage: 30 MG, QD (2 X 15 MG)
     Route: 065
     Dates: start: 20230330
  2. RUXOLITINIB [Suspect]
     Active Substance: RUXOLITINIB
     Dosage: 20 MG (2 X 10 MG)
     Route: 065
  3. RUXOLITINIB [Suspect]
     Active Substance: RUXOLITINIB
     Dosage: 30 MG (2 X 15 MG)
     Route: 065
  4. TRASTUZUMAB [Concomitant]
     Active Substance: TRASTUZUMAB
     Indication: Breast cancer
     Dosage: UNK, QMO (MONTHLY)
     Route: 065

REACTIONS (9)
  - Pleural effusion [Unknown]
  - Anaemia [Recovering/Resolving]
  - General physical health deterioration [Unknown]
  - Varices oesophageal [Unknown]
  - Hepatic cirrhosis [Recovering/Resolving]
  - Hyperbilirubinaemia [Unknown]
  - Portal hypertensive gastropathy [Recovering/Resolving]
  - Splenomegaly [Unknown]
  - Thrombocytopenia [Unknown]

NARRATIVE: CASE EVENT DATE: 20230501
